FAERS Safety Report 4303107-2 (Version None)
Quarter: 2004Q1

REPORT INFORMATION
  Report Type: 
  Country: None (occurrence: None)
  Receive Date: 20040223
  Receipt Date: 20040206
  Transmission Date: 20041129
  Serious: Yes (Other)
  Sender: FDA-Public Use
  Company Number: US-SHR-03-019680

PATIENT
  Age: 24 Year
  Sex: Female
  Weight: 57.6 kg

DRUGS (3)
  1. MIRENA [Suspect]
     Indication: CONTRACEPTION
     Dosage: 20 UG/DAY, CONT, INTRA-UTERINE
     Route: 015
     Dates: start: 20030301
  2. ESTROGEN NOS [Concomitant]
  3. PAXIL [Concomitant]

REACTIONS (5)
  - ABDOMINAL PAIN [None]
  - CERVICITIS [None]
  - CERVIX CARCINOMA STAGE 0 [None]
  - IUCD COMPLICATION [None]
  - PAIN [None]
